FAERS Safety Report 5068274-4 (Version None)
Quarter: 2006Q3

REPORT INFORMATION
  Report Type: 
  Country: None (occurrence: None)
  Receive Date: 20060802
  Receipt Date: 20050707
  Transmission Date: 20061208
  Serious: No
  Sender: FDA-Public Use
  Company Number: US-BRISTOL-MYERS SQUIBB COMPANY-13029608

PATIENT
  Age: 73 Year
  Sex: Male
  Weight: 112 kg

DRUGS (21)
  1. COUMADIN [Suspect]
     Indication: ATRIAL FIBRILLATION
     Dosage: TAKING VARYING DOSAGES; CURRENT REGIMEN: 7.5 MG DAILY
     Route: 048
     Dates: start: 20041201
  2. GLUCOTROL [Concomitant]
  3. OXYCONTIN [Concomitant]
  4. PERCOCET [Concomitant]
  5. LEVOXYL [Concomitant]
  6. FOLTX [Concomitant]
  7. CALCITRIOL [Concomitant]
  8. NEXIUM [Concomitant]
  9. LISINOPRIL [Concomitant]
  10. LASIX [Concomitant]
  11. LIPITOR [Concomitant]
  12. DITROPAN XL [Concomitant]
  13. DOXAZOSIN [Concomitant]
  14. ZONEGRAN [Concomitant]
  15. LACTULOSE [Concomitant]
     Dosage: 2 TABLESPOONS
     Route: 048
  16. VITAMINS [Concomitant]
  17. BENICAR [Concomitant]
  18. FLOMAX [Concomitant]
  19. NORVASC [Concomitant]
  20. HUMALOG [Concomitant]
     Dosage: SLIDING SCALE 12-15 UNITS
     Route: 058
  21. LANTUS [Concomitant]
     Dosage: HS 15-20
     Route: 058

REACTIONS (2)
  - HEADACHE [None]
  - INTERNATIONAL NORMALISED RATIO INCREASED [None]
